FAERS Safety Report 5282172-2 (Version None)
Quarter: 2007Q1

REPORT INFORMATION
  Report Type: 
  Country: None (occurrence: None)
  Receive Date: 20070330
  Receipt Date: 20070319
  Transmission Date: 20070707
  Serious: Yes (Hospitalization)
  Sender: FDA-Public Use
  Company Number: FR-PFIZER INC-2007010400

PATIENT
  Sex: Female
  Weight: 50 kg

DRUGS (6)
  1. LYRICA [Suspect]
     Indication: NEURALGIA
     Route: 048
     Dates: start: 20060706, end: 20070124
  2. CONTRAMAL [Concomitant]
     Route: 048
  3. LEVOCARNIL [Concomitant]
     Route: 048
  4. LAROXYL [Concomitant]
     Route: 048
     Dates: start: 20060706, end: 20061023
  5. VITAMINS [Concomitant]
     Route: 048
  6. DIAZEPAM [Concomitant]

REACTIONS (9)
  - DIZZINESS [None]
  - DROWNING [None]
  - FALL [None]
  - GRAND MAL CONVULSION [None]
  - HEAD INJURY [None]
  - MEMORY IMPAIRMENT [None]
  - PETIT MAL EPILEPSY [None]
  - RESTLESSNESS [None]
  - VERTIGO [None]
